FAERS Safety Report 9433513 (Version 2)
Quarter: 2013Q4

REPORT INFORMATION
  Report Type: Spontaneous
  Country: FR (occurrence: FR)
  Receive Date: 20130731
  Receipt Date: 20131216
  Transmission Date: 20140711
  Serious: Yes (Hospitalization, Other)
  Sender: FDA-Public Use
  Company Number: FR-ACTAVIS-2013-12968

PATIENT
  Age: 13 Year
  Sex: Female

DRUGS (1)
  1. PARACETAMOL (UNKNOWN) [Suspect]
     Indication: PRODUCT USED FOR UNKNOWN INDICATION
     Dosage: 30 G, BEING 588 MG/KG
     Route: 065

REACTIONS (4)
  - Renal failure acute [Unknown]
  - Hepatic failure [Unknown]
  - Metabolic disorder [Unknown]
  - Intentional overdose [Unknown]
